FAERS Safety Report 5371833-2 (Version None)
Quarter: 2007Q2

REPORT INFORMATION
  Report Type: 
  Country: None (occurrence: None)
  Receive Date: 20070627
  Receipt Date: 20070622
  Transmission Date: 20071010
  Serious: Yes (Death)
  Sender: FDA-Public Use
  Company Number: US-ASTRAZENECA-2007UW03393

PATIENT
  Age: 54 Year
  Sex: Female

DRUGS (12)
  1. SEROQUEL [Suspect]
     Route: 048
  2. HALDOL [Concomitant]
     Route: 042
     Dates: start: 20070130
  3. HALDOL [Concomitant]
     Route: 030
     Dates: start: 20070209
  4. HALDOL [Concomitant]
     Route: 030
     Dates: start: 20070213
  5. HALDOL [Concomitant]
     Route: 030
     Dates: start: 20070214
  6. HALDOL [Concomitant]
     Route: 030
     Dates: start: 20070215
  7. HALDOL [Concomitant]
     Route: 030
     Dates: start: 20070216
  8. ATIVAN [Concomitant]
  9. TEGRETOL [Concomitant]
     Dates: start: 20070201, end: 20070207
  10. OLANZAPINE [Concomitant]
     Dates: start: 20070201, end: 20070207
  11. CLINIDIPINE [Concomitant]
     Dates: start: 20070207
  12. RISPERIDONE [Concomitant]
     Dates: start: 20070214

REACTIONS (19)
  - ANOXIA [None]
  - BACK PAIN [None]
  - BLOOD PRESSURE DECREASED [None]
  - BLOOD PRESSURE INCREASED [None]
  - CONVULSION [None]
  - DILATATION VENTRICULAR [None]
  - DYSPNOEA [None]
  - ELECTROENCEPHALOGRAM ABNORMAL [None]
  - FALL [None]
  - LEFT VENTRICULAR DYSFUNCTION [None]
  - MULTI-ORGAN FAILURE [None]
  - NEUROLEPTIC MALIGNANT SYNDROME [None]
  - RENAL FAILURE ACUTE [None]
  - TACHYCARDIA [None]
  - TACHYPNOEA [None]
  - TREMOR [None]
  - UNRESPONSIVE TO STIMULI [None]
  - URINARY TRACT INFECTION STAPHYLOCOCCAL [None]
  - VERTIGO [None]
